FAERS Safety Report 24678906 (Version 1)
Quarter: 2024Q4

REPORT INFORMATION
  Report Type: Spontaneous
  Country: AE (occurrence: AE)
  Receive Date: 20241129
  Receipt Date: 20241129
  Transmission Date: 20250114
  Serious: Yes (Hospitalization, Other)
  Sender: ASTELLAS
  Company Number: AE-ASTELLAS-2024-AER-020605

PATIENT
  Age: 38 Year
  Sex: Male

DRUGS (3)
  1. TACROLIMUS [Suspect]
     Active Substance: TACROLIMUS
     Indication: Renal transplant
     Dosage: TARGET TROUGH LEVEL 4-6 NG/ML
     Route: 065
     Dates: start: 2018
  2. MYCOPHENOLIC ACID [Concomitant]
     Active Substance: MYCOPHENOLIC ACID
     Indication: Renal transplant
     Route: 065
     Dates: start: 2018
  3. PREDNISOLONE [Concomitant]
     Active Substance: PREDNISOLONE
     Indication: Renal transplant
     Route: 065
     Dates: start: 2018

REACTIONS (9)
  - Septic shock [Unknown]
  - Infection [Unknown]
  - Device related infection [Recovered/Resolved]
  - Pathogen resistance [Unknown]
  - Sepsis [Unknown]
  - Bacterial infection [Unknown]
  - Klebsiella infection [Unknown]
  - Osteomyelitis [Unknown]
  - Enterobacter infection [Unknown]
